FAERS Safety Report 21408738 (Version 1)
Quarter: 2022Q4

REPORT INFORMATION
  Report Type: Spontaneous
  Country: US (occurrence: None)
  Receive Date: 20221004
  Receipt Date: 20221004
  Transmission Date: 20230113
  Serious: Yes (unspecified)
  Sender: FDA-Public Use
  Company Number: None

PATIENT
  Age: 71 Year
  Sex: Male

DRUGS (12)
  1. HUMIRA [Suspect]
     Active Substance: ADALIMUMAB
     Route: 058
  2. TREMFYA [Suspect]
     Active Substance: GUSELKUMAB
     Indication: Psoriatic arthropathy
     Dosage: OTHER FREQUENCY : EVERY 8 WEEKS;?
     Route: 058
     Dates: start: 20220124
  3. LIPITOR [Concomitant]
     Active Substance: ATORVASTATIN CALCIUM
  4. METHOTREXATE [Concomitant]
     Active Substance: METHOTREXATE
  5. FINASTERIDE [Concomitant]
     Active Substance: FINASTERIDE
  6. DILTIAZEM [Concomitant]
     Active Substance: DILTIAZEM
  7. BETIMOL [Concomitant]
     Active Substance: TIMOLOL
  8. EPLERENONE [Concomitant]
     Active Substance: EPLERENONE
  9. VITAMIN D [Concomitant]
     Active Substance: VITAMIN D NOS
  10. VITAMINS [Concomitant]
     Active Substance: VITAMINS
  11. FOLIC ACID [Concomitant]
     Active Substance: FOLIC ACID
  12. HERBALS\TURMERIC [Concomitant]
     Active Substance: HERBALS\TURMERIC

REACTIONS (3)
  - Chronic lymphocytic leukaemia [None]
  - Drug ineffective [None]
  - Squamous cell carcinoma [None]
